FAERS Safety Report 5726250-X (Version None)
Quarter: 2008Q2

REPORT INFORMATION
  Report Type: 
  Country: None (occurrence: None)
  Receive Date: 20080502
  Receipt Date: 20080428
  Transmission Date: 20081010
  Serious: Yes (Life-Threatening)
  Sender: FDA-Public Use
  Company Number: US-WYE-H03832308

PATIENT
  Age: 63 Year
  Sex: Female

DRUGS (2)
  1. TYGACIL [Suspect]
     Indication: PORTAL VEIN THROMBOSIS
     Dosage: 100 MG LOADING DOSE FOLLOWED BY 25 MG EVERY 12 HOURS
     Route: 042
     Dates: start: 20080426
  2. TYGACIL [Suspect]
     Indication: INTESTINAL ISCHAEMIA

REACTIONS (1)
  - WHITE BLOOD CELL COUNT DECREASED [None]
